FAERS Safety Report 9581456 (Version 1)
Quarter: 2013Q4

REPORT INFORMATION
  Report Type: Spontaneous
  Country: US (occurrence: US)
  Receive Date: 20131002
  Receipt Date: 20131002
  Transmission Date: 20140711
  Serious: No
  Sender: FDA-Public Use
  Company Number: US-PURDUE-USA-2012-0081309

PATIENT
  Age: 52 Year
  Sex: Male

DRUGS (1)
  1. BUTRANS [Suspect]
     Indication: PAIN
     Dosage: 10 MCG, Q1H
     Route: 062
     Dates: start: 201110

REACTIONS (12)
  - Drug effect increased [Recovered/Resolved]
  - Coordination abnormal [Recovered/Resolved]
  - Inappropriate schedule of drug administration [Recovered/Resolved]
  - Product adhesion issue [Unknown]
  - Product contamination microbial [Recovered/Resolved]
  - Product size issue [Unknown]
  - Dizziness [Recovered/Resolved]
  - Nausea [Recovered/Resolved]
  - Drug effect decreased [Recovered/Resolved]
  - Application site irritation [Unknown]
  - Inadequate analgesia [Unknown]
  - Product solubility abnormal [Unknown]
